FAERS Safety Report 9685674 (Version 1)
Quarter: 2013Q4

REPORT INFORMATION
  Report Type: Spontaneous
  Country: US (occurrence: US)
  Receive Date: 20131113
  Receipt Date: 20131113
  Transmission Date: 20140711
  Serious: No
  Sender: FDA-Public Use
  Company Number: US-PFIZER INC-2013318819

PATIENT
  Sex: Female

DRUGS (2)
  1. ADVIL [Suspect]
     Dosage: 16 ADVIL, DAILY
  2. IBUPROFEN [Suspect]
     Dosage: 2400 MG (800 MG, 3 PER DAY)

REACTIONS (2)
  - Overdose [Unknown]
  - Drug screen positive [Unknown]
